FAERS Safety Report 15984874 (Version 1)
Quarter: 2019Q1

REPORT INFORMATION
  Report Type: Spontaneous
  Country: US (occurrence: US)
  Receive Date: 20190219
  Receipt Date: 20190219
  Transmission Date: 20190418
  Serious: Yes (Death)
  Sender: FDA-Public Use
  Company Number: None

PATIENT
  Age: 60 Year
  Sex: Female
  Weight: 47.25 kg

DRUGS (3)
  1. LISINOPRIL. [Concomitant]
     Active Substance: LISINOPRIL
  2. MIRTAZIPINE [Suspect]
     Active Substance: MIRTAZAPINE
     Indication: DEPRESSION
     Dosage: ?          QUANTITY:1 TABLET(S);?
     Route: 048
     Dates: start: 20190119, end: 20190201
  3. MIRTAZIPINE [Suspect]
     Active Substance: MIRTAZAPINE
     Indication: PSEUDODEMENTIA
     Dosage: ?          QUANTITY:1 TABLET(S);?
     Route: 048
     Dates: start: 20190119, end: 20190201

REACTIONS (3)
  - Completed suicide [None]
  - Intentional overdose [None]
  - Feeling jittery [None]

NARRATIVE: CASE EVENT DATE: 20190201
